FAERS Safety Report 25908918 (Version 1)
Quarter: 2025Q4

REPORT INFORMATION
  Report Type: Spontaneous
  Country: US (occurrence: US)
  Receive Date: 20251011
  Receipt Date: 20251011
  Transmission Date: 20260117
  Serious: No
  Sender: ABBVIE
  Company Number: US-ABBVIE-6486035

PATIENT
  Age: 69 Year
  Sex: Female
  Weight: 90 kg

DRUGS (1)
  1. ARMOUR THYROID [Suspect]
     Active Substance: THYROID, PORCINE
     Indication: Autoimmune thyroiditis
     Route: 065

REACTIONS (4)
  - Drug intolerance [Unknown]
  - Palpitations [Unknown]
  - Allergy to chemicals [Unknown]
  - Drug ineffective [Unknown]
